FAERS Safety Report 5715355-5 (Version None)
Quarter: 2008Q2

REPORT INFORMATION
  Report Type: 
  Country: None (occurrence: None)
  Receive Date: 20080423
  Receipt Date: 20080411
  Transmission Date: 20081010
  Serious: Yes (Other)
  Sender: FDA-Public Use
  Company Number: CA-PFIZER INC-2008032818

PATIENT
  Age: 53 Year
  Sex: Female

DRUGS (2)
  1. CHAMPIX [Suspect]
  2. COTYLENOL [Suspect]

REACTIONS (7)
  - ANXIETY [None]
  - CHEST DISCOMFORT [None]
  - COLD SWEAT [None]
  - HEADACHE [None]
  - SKIN BURNING SENSATION [None]
  - TACHYCARDIA [None]
  - THROAT TIGHTNESS [None]
